FAERS Safety Report 8793086 (Version 3)
Quarter: 2012Q4

REPORT INFORMATION
  Report Type: 
  Country: US (occurrence: US)
  Receive Date: 20120917
  Receipt Date: 20121121
  Transmission Date: 20130627
  Serious: Yes (Other)
  Sender: FDA-Public Use
  Company Number: US-ALLERGAN-1212594US

PATIENT
  Age: 55 Year
  Sex: Female
  Weight: 86.6 kg

DRUGS (5)
  1. LATISSE 0.03% [Suspect]
     Indication: HYPOTRICHOSIS OF EYELID
     Dosage: 2 Gtt, UNK
     Route: 061
     Dates: start: 20120821, end: 20120907
  2. DILTIAZEM [Concomitant]
     Indication: BLOOD PRESSURE
  3. LISINOPRIL [Concomitant]
     Indication: BLOOD PRESSURE
  4. LEVOXYL [Concomitant]
     Indication: THYROID DISORDER NOS
  5. ESTRADIOL [Concomitant]
     Indication: HORMONE REPLACEMENT THERAPY

REACTIONS (11)
  - Dyspnoea [Recovered/Resolved]
  - Panic reaction [Recovered/Resolved]
  - Dizziness [Recovered/Resolved]
  - Vertigo [Recovered/Resolved]
  - Abnormal sensation in eye [Recovered/Resolved]
  - Hyperhidrosis [Recovered/Resolved]
  - Middle insomnia [Recovered/Resolved]
  - Nausea [Recovered/Resolved]
  - Hyperhidrosis [Recovered/Resolved]
  - Tremor [Recovered/Resolved]
  - Erythema of eyelid [Recovered/Resolved]
